FAERS Safety Report 5821981-5 (Version None)
Quarter: 2008Q3

REPORT INFORMATION
  Report Type: 
  Country: None (occurrence: None)
  Receive Date: 20080724
  Receipt Date: 20080716
  Transmission Date: 20090109
  Serious: Yes (Other)
  Sender: FDA-Public Use
  Company Number: US-MERCK-0807USA03308

PATIENT
  Age: 91 Year
  Sex: Female

DRUGS (3)
  1. FOSAMAX [Suspect]
     Indication: BONE DISORDER
     Route: 048
     Dates: start: 19930701
  2. FOSAMAX [Suspect]
     Route: 048
  3. OS-CAL [Concomitant]
     Route: 065
     Dates: start: 19930701

REACTIONS (2)
  - JOINT INJURY [None]
  - MACULAR DEGENERATION [None]
